FAERS Safety Report 7241627-1 (Version None)
Quarter: 2011Q1

REPORT INFORMATION
  Report Type: 
  Country: None (occurrence: None)
  Receive Date: 20110120
  Receipt Date: 20110120
  Transmission Date: 20110831
  Serious: No
  Sender: FDA-Public Use
  Company Number: None

PATIENT
  Age: 43 Month
  Sex: Male
  Weight: 77.1115 kg

DRUGS (1)
  1. OXYCONTIN [Suspect]
     Indication: PAIN MANAGEMENT
     Dosage: 1 TABLET TWCE A DAY DAILY PO
     Route: 048
     Dates: start: 20101101, end: 20110119

REACTIONS (14)
  - FATIGUE [None]
  - DRY EYE [None]
  - VISUAL IMPAIRMENT [None]
  - INADEQUATE ANALGESIA [None]
  - ABDOMINAL DISCOMFORT [None]
  - HAEMATEMESIS [None]
  - DRY MOUTH [None]
  - DYSKINESIA [None]
  - FEELING OF BODY TEMPERATURE CHANGE [None]
  - HEADACHE [None]
  - DIARRHOEA [None]
  - PRODUCT FORMULATION ISSUE [None]
  - TOOTH DISORDER [None]
  - DISTURBANCE IN ATTENTION [None]
